FAERS Safety Report 5283023-2 (Version None)
Quarter: 2007Q2

REPORT INFORMATION
  Report Type: 
  Country: None (occurrence: None)
  Receive Date: 20070402
  Receipt Date: 20070327
  Transmission Date: 20071010
  Serious: Yes (Hospitalization)
  Sender: FDA-Public Use
  Company Number: US-AMGEN-US195874

PATIENT
  Sex: Female

DRUGS (24)
  1. PANITUMUMAB [Suspect]
     Indication: COLORECTAL CANCER
     Route: 042
     Dates: start: 20060417, end: 20060925
  2. OXALIPLATIN [Concomitant]
     Route: 042
  3. LEUCOVORIN CALCIUM [Concomitant]
     Route: 042
  4. FLUOROURACIL [Concomitant]
     Route: 042
  5. AVASTIN [Concomitant]
     Route: 042
  6. HYDROCODONE [Concomitant]
     Dates: start: 20060321, end: 20060321
  7. COMPAZINE [Concomitant]
     Route: 048
     Dates: start: 20060417, end: 20060417
  8. EMEND [Concomitant]
     Route: 048
     Dates: start: 20060417, end: 20060417
  9. EMEND [Concomitant]
     Route: 048
     Dates: start: 20060418, end: 20060418
  10. EMEND [Concomitant]
     Route: 048
     Dates: start: 20060419, end: 20060419
  11. NEOSPORIN [Concomitant]
     Route: 061
     Dates: start: 20060425, end: 20061009
  12. DOXYCYCLINE [Concomitant]
     Route: 061
     Dates: start: 20060530, end: 20060713
  13. DOXYCYCLINE [Concomitant]
     Route: 048
     Dates: start: 20060731, end: 20060821
  14. POTASSIUM ACETATE [Concomitant]
     Route: 048
     Dates: start: 20060616, end: 20060616
  15. ROBAXIN [Concomitant]
     Route: 048
     Dates: start: 20060629, end: 20060705
  16. AZOSEMIDE [Concomitant]
     Route: 048
     Dates: start: 20060612, end: 20060619
  17. CLINDAMYCIN PHOSPHATE/BENZOYL PEROXIDE [Concomitant]
     Route: 061
     Dates: start: 20060623, end: 20060623
  18. GASCON [Concomitant]
     Route: 048
     Dates: start: 20060523, end: 20061009
  19. KEFLEX [Concomitant]
     Route: 048
     Dates: start: 20060821, end: 20060904
  20. KEFLEX [Concomitant]
     Route: 048
     Dates: start: 20060925, end: 20061003
  21. BENADRYL [Concomitant]
     Route: 042
     Dates: start: 20061030, end: 20061030
  22. BENADRYL [Concomitant]
     Route: 042
     Dates: start: 20061113, end: 20061113
  23. DECADRON [Concomitant]
     Route: 042
     Dates: start: 20061113, end: 20061113
  24. TAGAMET [Concomitant]
     Route: 042
     Dates: start: 20061113, end: 20061113

REACTIONS (1)
  - SKIN INFECTION [None]
